FAERS Safety Report 6790357-9 (Version None)
Quarter: 2010Q2

REPORT INFORMATION
  Report Type: 
  Country: None (occurrence: None)
  Receive Date: 20100624
  Receipt Date: 20100611
  Transmission Date: 20101027
  Serious: Yes (Other)
  Sender: FDA-Public Use
  Company Number: PHHY2010CN38355

PATIENT
  Age: 70 Year
  Sex: Female

DRUGS (1)
  1. ACLASTA [Suspect]
     Indication: OSTEOPOROSIS POSTMENOPAUSAL
     Dosage: 5 MG YEARLY
     Route: 042
     Dates: start: 20100611

REACTIONS (8)
  - ABDOMINAL PAIN [None]
  - CYANOSIS [None]
  - FATIGUE [None]
  - HYPOCALCAEMIA [None]
  - INCONTINENCE [None]
  - NAUSEA [None]
  - PYREXIA [None]
  - VOMITING [None]
